FAERS Safety Report 4700871-5 (Version None)
Quarter: 2005Q2

REPORT INFORMATION
  Report Type: 
  Country: None (occurrence: None)
  Receive Date: 20050128
  Receipt Date: 20050128
  Transmission Date: 20051028
  Serious: No
  Sender: FDA-Public Use
  Company Number: None

PATIENT
  Age: 82 Year
  Sex: Female
  Weight: 69.8539 kg

DRUGS (7)
  1. WARFARIN SODIUM [Suspect]
     Indication: ATRIAL FIBRILLATION
     Dosage: SEE IMAGE
     Dates: start: 20030901, end: 20040101
  2. HYDROCHLOROTHIAZIDE [Concomitant]
  3. DILTIAZEM HCL [Concomitant]
  4. ZESTRIL [Concomitant]
  5. DIGOXIN [Concomitant]
  6. LEXAPRO [Concomitant]
  7. EVISTA [Concomitant]

REACTIONS (3)
  - DRUG EFFECT DECREASED [None]
  - PROTHROMBIN TIME ABNORMAL [None]
  - THERAPEUTIC RESPONSE UNEXPECTED WITH DRUG SUBSTITUTION [None]
